FAERS Safety Report 9226457 (Version 2)
Quarter: 2013Q2

REPORT INFORMATION
  Report Type: Spontaneous
  Country: US (occurrence: US)
  Receive Date: 20130411
  Receipt Date: 20130416
  Transmission Date: 20140414
  Serious: No
  Sender: FDA-Public Use
  Company Number: US-009507513-1304USA004731

PATIENT
  Sex: Male

DRUGS (13)
  1. STROMECTOL [Suspect]
     Indication: INFECTION PARASITIC
     Dosage: UNK, BID
     Route: 048
     Dates: start: 20130328
  2. OXYGEN [Concomitant]
  3. PROVENTIL [Concomitant]
  4. SYMBICORT [Concomitant]
  5. ZOLPIDEM TARTRATE [Concomitant]
  6. ALPRAZOLAM [Concomitant]
  7. CYMBALTA [Concomitant]
  8. GLYVENOL [Concomitant]
  9. FUROSEMIDE [Concomitant]
  10. POTKLOR [Concomitant]
  11. VESICARE [Concomitant]
  12. ASPIRIN [Concomitant]
  13. VIAGRA [Concomitant]

REACTIONS (2)
  - Infection parasitic [Recovering/Resolving]
  - Drug ineffective [Unknown]
